FAERS Safety Report 18764824 (Version 1)
Quarter: 2021Q1

REPORT INFORMATION
  Report Type: Spontaneous
  Country: US (occurrence: US)
  Receive Date: 20210120
  Receipt Date: 20210120
  Transmission Date: 20210419
  Serious: Yes (Other)
  Sender: FDA-Public Use
  Company Number: US-THE MENTHOLATUM COMPANY-2105606

PATIENT
  Age: 85 Year
  Sex: Female

DRUGS (1)
  1. CVS HEALTH MAXIMUM STRENGTH LIDOCAINE PAIN RELIEF CREAM PLUS MENTHOL [Suspect]
     Active Substance: LEVOMENTHOL\LIDOCAINE HYDROCHLORIDE
     Indication: LOCAL ANAESTHESIA
     Route: 061
     Dates: start: 20210118, end: 20210118

REACTIONS (1)
  - Hypersensitivity [Unknown]

NARRATIVE: CASE EVENT DATE: 20210119
